FAERS Safety Report 21260165 (Version 1)
Quarter: 2022Q3

REPORT INFORMATION
  Report Type: Spontaneous
  Country: US (occurrence: None)
  Receive Date: 20220824
  Receipt Date: 20220824
  Transmission Date: 20221027
  Serious: Yes (Other)
  Sender: FDA-Public Use
  Company Number: None

PATIENT
  Age: 46 Year
  Sex: Male
  Weight: 157.5 kg

DRUGS (4)
  1. ZONISAMIDE [Suspect]
     Active Substance: ZONISAMIDE
     Indication: Neuropathy peripheral
     Dosage: OTHER QUANTITY : 90 CAPSULE(S);?FREQUENCY : 3 TIMES A DAY;?
     Route: 048
     Dates: start: 20220707, end: 20220821
  2. AMLODIPINE [Concomitant]
     Active Substance: AMLODIPINE BESYLATE
  3. CIPROFLOXACIN HYDROCHLORIDE [Concomitant]
     Active Substance: CIPROFLOXACIN HYDROCHLORIDE
  4. METOPROLOL [Concomitant]

REACTIONS (4)
  - Lymphocyte stimulation test positive [None]
  - Legal problem [None]
  - Product contamination chemical [None]
  - Impaired quality of life [None]

NARRATIVE: CASE EVENT DATE: 20220823
